FAERS Safety Report 7508577-4 (Version None)
Quarter: 2011Q2

REPORT INFORMATION
  Report Type: 
  Country: None (occurrence: None)
  Receive Date: 20110527
  Receipt Date: 20110517
  Transmission Date: 20111010
  Serious: Yes (Other)
  Sender: FDA-Public Use
  Company Number: US-ABBOTT-11P-163-0726362-00

PATIENT
  Sex: Male
  Weight: 84.444 kg

DRUGS (2)
  1. LUPRON DEPOT [Suspect]
     Dates: start: 20100901, end: 20101001
  2. LUPRON DEPOT [Suspect]
     Indication: PROSTATE CANCER
     Dates: start: 20100201, end: 20100901

REACTIONS (6)
  - AMNESIA [None]
  - IRRITABILITY [None]
  - INSOMNIA [None]
  - BRAIN INJURY [None]
  - TOOTHACHE [None]
  - WEIGHT INCREASED [None]
